FAERS Safety Report 6470517-7 (Version None)
Quarter: 2009Q4

REPORT INFORMATION
  Report Type: 
  Country: None (occurrence: None)
  Receive Date: 20091202
  Receipt Date: 20091202
  Transmission Date: 20100525
  Serious: Yes (Hospitalization, Other)
  Sender: FDA-Public Use
  Company Number: None

PATIENT
  Age: 62 Year
  Sex: Female
  Weight: 68.0396 kg

DRUGS (1)
  1. CHANTIX [Suspect]
     Indication: SMOKING CESSATION THERAPY
     Dosage: 1 0.5MG PO DAILY FOR 1 WEEK 1 DAILY PO
     Route: 048
     Dates: start: 20090526, end: 20090606

REACTIONS (2)
  - DEEP VEIN THROMBOSIS [None]
  - LABILE BLOOD PRESSURE [None]
